FAERS Safety Report 11610291 (Version 1)
Quarter: 2015Q4

REPORT INFORMATION
  Report Type: Spontaneous
  Country: US (occurrence: US)
  Receive Date: 20151008
  Receipt Date: 20151008
  Transmission Date: 20160304
  Serious: No
  Sender: FDA-Public Use
  Company Number: US-BRISTOL-MYERS SQUIBB COMPANY-BMS-2015-066688

PATIENT
  Sex: Male

DRUGS (1)
  1. ABILIFY [Suspect]
     Active Substance: ARIPIPRAZOLE
     Indication: DEPRESSION
     Dosage: UNK
     Route: 065

REACTIONS (5)
  - Off label use [Unknown]
  - Wrong technique in product usage process [Unknown]
  - Jaw disorder [Recovered/Resolved]
  - Agitation [Recovered/Resolved]
  - Bruxism [Recovered/Resolved]
